FAERS Safety Report 9184016 (Version 1)
Quarter: 2012Q4

REPORT INFORMATION
  Report Type: 
  Country: US (occurrence: US)
  Receive Date: 20121101
  Receipt Date: 20121101
  Transmission Date: 20130627
  Serious: Yes (Other)
  Sender: FDA-Public Use
  Company Number: US-ROCHE-1130793

PATIENT
  Age: 68 None
  Sex: Female

DRUGS (9)
  1. RITUXAN [Suspect]
     Indication: CHRONIC LYMPHOCYTIC LEUKAEMIA
     Dosage: 12/Jun/2000: last dose administered
     Route: 065
     Dates: start: 20000605
  2. PAXIL [Concomitant]
     Route: 065
  3. FOLIC ACID [Concomitant]
     Route: 065
  4. SPORANOX [Concomitant]
     Route: 065
  5. TYLENOL [Concomitant]
  6. DANAZOL [Concomitant]
     Route: 065
  7. PREDNISONE [Concomitant]
     Route: 065
  8. CARAFATE [Concomitant]
     Dosage: CARAFATESLURRY prior to meal when required
     Route: 065
  9. FLUDARABINE [Concomitant]

REACTIONS (3)
  - Epistaxis [Unknown]
  - Mucosal haemorrhage [Unknown]
  - Platelet count decreased [Unknown]
